FAERS Safety Report 6182007-X (Version None)
Quarter: 2009Q2

REPORT INFORMATION
  Report Type: 
  Country: None (occurrence: None)
  Receive Date: 20090505
  Receipt Date: 20090430
  Transmission Date: 20091009
  Serious: Yes (Other)
  Sender: FDA-Public Use
  Company Number: CHPA2009US09547

PATIENT
  Sex: Female
  Weight: 68 kg

DRUGS (1)
  1. NICOTINE [Suspect]
     Indication: SMOKING CESSATION THERAPY
     Dosage: 1 PATCH, BID, TRANSDERMAL
     Route: 062
     Dates: start: 20090415, end: 20090415

REACTIONS (3)
  - DEVICE FAILURE [None]
  - HOMICIDAL IDEATION [None]
  - PRODUCT QUALITY ISSUE [None]
